FAERS Safety Report 8863998 (Version 1)
Quarter: 2012Q4

REPORT INFORMATION
  Report Type: 
  Country: US (occurrence: US)
  Receive Date: 20121024
  Receipt Date: 20121024
  Transmission Date: 20130627
  Serious: No
  Sender: FDA-Public Use
  Company Number: US-AMGEN-USASP2011065047

PATIENT
  Age: 59 Year
  Sex: Female
  Weight: 83.9 kg

DRUGS (7)
  1. ENBREL [Suspect]
     Indication: PRODUCT USED FOR UNKNOWN INDICATION
     Dosage: 50 mg, qwk
  2. SYNTHROID [Concomitant]
     Dosage: 100 mug, UNK
  3. ASPIRIN [Concomitant]
     Dosage: 81 mg, UNK
  4. CALCIUM [Concomitant]
  5. POTASSIUM [Concomitant]
  6. VITAMIN D /00107901/ [Concomitant]
     Dosage: 1000 IU, UNK
  7. TRAMADOL HCL [Concomitant]
     Dosage: 50 mg, UNK

REACTIONS (4)
  - Feeling abnormal [Unknown]
  - Cough [Unknown]
  - Paranasal sinus hypersecretion [Unknown]
  - Bronchitis [Unknown]
